FAERS Safety Report 5215693-9 (Version None)
Quarter: 2007Q1

REPORT INFORMATION
  Report Type: 
  Country: None (occurrence: None)
  Receive Date: 20070123
  Receipt Date: 20070111
  Transmission Date: 20070707
  Serious: Yes (Hospitalization)
  Sender: FDA-Public Use
  Company Number: FR-ROCHE-478124

PATIENT
  Age: 53 Year
  Sex: Male
  Weight: 54 kg

DRUGS (6)
  1. MYCOPHENOLATE MOFETIL [Suspect]
     Route: 048
     Dates: start: 20061018
  2. NEORAL [Suspect]
     Route: 065
     Dates: start: 20061118, end: 20061124
  3. OMEPRAZOLE [Concomitant]
     Dates: start: 20061026
  4. ICAZ [Concomitant]
     Dates: start: 20061019
  5. CIPROFLOXACIN [Concomitant]
     Dates: start: 20061026
  6. BACTRIM DS [Concomitant]
     Dates: start: 20061020

REACTIONS (1)
  - OSTEOARTHRITIS [None]
